FAERS Safety Report 4477293-8 (Version None)
Quarter: 2004Q3

REPORT INFORMATION
  Report Type: 
  Country: None (occurrence: None)
  Receive Date: 20040923
  Receipt Date: 20040617
  Transmission Date: 20050211
  Serious: No
  Sender: FDA-Public Use
  Company Number: USA040670329

PATIENT
  Age: 57 Year
  Sex: Female
  Weight: 62 kg

DRUGS (3)
  1. FORTEO [Suspect]
     Indication: OSTEOPOROSIS
     Dosage: 20 UG/1 DAY
     Dates: start: 20040520
  2. CITRACAL + D [Concomitant]
  3. CENTRUM [Concomitant]

REACTIONS (2)
  - CONSTIPATION [None]
  - INJECTION SITE HAEMORRHAGE [None]
